APPROVED DRUG PRODUCT: AMIKACIN SULFATE IN SODIUM CHLORIDE 0.9% IN PLASTIC CONTAINER
Active Ingredient: AMIKACIN SULFATE
Strength: EQ 500MG BASE/100ML
Dosage Form/Route: INJECTABLE;INJECTION
Application: A064146 | Product #001
Applicant: HOSPIRA WORLDWIDE, INC
Approved: Apr 2, 1997 | RLD: No | RS: No | Type: DISCN